FAERS Safety Report 13234137 (Version 1)
Quarter: 2017Q1

REPORT INFORMATION
  Report Type: Spontaneous
  Country: US (occurrence: US)
  Receive Date: 20170214
  Receipt Date: 20170214
  Transmission Date: 20170428
  Serious: Yes (Other)
  Sender: FDA-Public Use
  Company Number: None

PATIENT
  Age: 4 Year
  Sex: Female
  Weight: 18.9 kg

DRUGS (2)
  1. BUDESONIDE. [Suspect]
     Active Substance: BUDESONIDE
     Indication: CROUP INFECTIOUS
     Dosage: ?          QUANTITY:1 CAPSULE(S);?
     Route: 055
     Dates: start: 20170206, end: 20170210
  2. BUDESONIDE. [Suspect]
     Active Substance: BUDESONIDE
     Indication: ASTHMA
     Dosage: ?          QUANTITY:1 CAPSULE(S);?
     Route: 055
     Dates: start: 20170206, end: 20170210

REACTIONS (2)
  - Psychotic disorder [None]
  - Unevaluable event [None]

NARRATIVE: CASE EVENT DATE: 20170214
